FAERS Safety Report 11238988 (Version 7)
Quarter: 2015Q4

REPORT INFORMATION
  Report Type: Spontaneous
  Country: US (occurrence: US)
  Receive Date: 20150706
  Receipt Date: 20151007
  Transmission Date: 20160304
  Serious: Yes (Other)
  Sender: FDA-Public Use
  Company Number: US-AMGEN-USASL2015064903

PATIENT
  Age: 55 Year
  Sex: Female

DRUGS (1)
  1. ENBREL [Suspect]
     Active Substance: ETANERCEPT
     Indication: RHEUMATOID ARTHRITIS
     Dosage: 50 MG, QWK
     Route: 065
     Dates: start: 20150605, end: 2015

REACTIONS (14)
  - Joint swelling [Recovering/Resolving]
  - Injection site urticaria [Not Recovered/Not Resolved]
  - Drug ineffective [Unknown]
  - Injection site reaction [Not Recovered/Not Resolved]
  - Musculoskeletal stiffness [Unknown]
  - Local swelling [Not Recovered/Not Resolved]
  - Discomfort [Unknown]
  - Injection site pruritus [Not Recovered/Not Resolved]
  - Pain in extremity [Not Recovered/Not Resolved]
  - Injection site erythema [Not Recovered/Not Resolved]
  - Joint fluid drainage [Unknown]
  - Drug effect incomplete [Unknown]
  - Arthralgia [Unknown]
  - Injection site swelling [Not Recovered/Not Resolved]

NARRATIVE: CASE EVENT DATE: 2015
